FAERS Safety Report 5404287-8 (Version None)
Quarter: 2007Q3

REPORT INFORMATION
  Report Type: 
  Country: None (occurrence: None)
  Receive Date: 20070802
  Receipt Date: 20070727
  Transmission Date: 20080115
  Serious: Yes (Other)
  Sender: FDA-Public Use
  Company Number: JP-ASTRAZENECA-2007AP04494

PATIENT
  Sex: Female

DRUGS (4)
  1. TENORMIN [Suspect]
     Indication: ILL-DEFINED DISORDER
     Route: 048
  2. NORVASC [Suspect]
     Indication: ILL-DEFINED DISORDER
     Route: 048
  3. AMLODIPINE [Suspect]
     Indication: ILL-DEFINED DISORDER
     Route: 048
  4. CALBLOCK [Suspect]
     Indication: ILL-DEFINED DISORDER
     Route: 048

REACTIONS (2)
  - PHARYNGEAL OEDEMA [None]
  - WHEEZING [None]
